FAERS Safety Report 6093576-2 (Version None)
Quarter: 2009Q1

REPORT INFORMATION
  Report Type: 
  Country: None (occurrence: None)
  Receive Date: 20090226
  Receipt Date: 20090213
  Transmission Date: 20090719
  Serious: Yes (Disabling, Other)
  Sender: FDA-Public Use
  Company Number: US-PFIZER INC-2007056774

PATIENT
  Sex: Female
  Weight: 91.156 kg

DRUGS (3)
  1. XANAX [Suspect]
     Indication: PANIC DISORDER
     Dosage: 10 MG, 1X/DAY
  2. XANAX [Suspect]
     Indication: ANXIETY
  3. KLONOPIN [Concomitant]

REACTIONS (8)
  - ATAXIA [None]
  - BLOOD CHOLESTEROL INCREASED [None]
  - DISABILITY [None]
  - DRUG DEPENDENCE [None]
  - FIBROMA [None]
  - GAIT DISTURBANCE [None]
  - MUSCLE SPASTICITY [None]
  - TOOTH FRACTURE [None]
